FAERS Safety Report 6663353-X (Version None)
Quarter: 2010Q2

REPORT INFORMATION
  Report Type: 
  Country: None (occurrence: None)
  Receive Date: 20100401
  Receipt Date: 20100323
  Transmission Date: 20101027
  Serious: Yes (Other)
  Sender: FDA-Public Use
  Company Number: US-NOVOPROD-306091

PATIENT
  Sex: Female
  Weight: 81.633 kg

DRUGS (2)
  1. NOVOLOG MIX 70/30 [Suspect]
     Indication: TYPE 1 DIABETES MELLITUS
     Dosage: 12 U, BID
     Route: 058
     Dates: start: 20020101
  2. LANTUS [Suspect]
     Indication: TYPE 1 DIABETES MELLITUS
     Dosage: UNKNOWN
     Route: 058
     Dates: start: 20080101

REACTIONS (1)
  - GANGRENE [None]
